FAERS Safety Report 14957838 (Version 3)
Quarter: 2019Q1

REPORT INFORMATION
  Report Type: Spontaneous
  Country: JP (occurrence: JP)
  Receive Date: 20180531
  Receipt Date: 20190227
  Transmission Date: 20190417
  Serious: Yes (Hospitalization, Other)
  Sender: FDA-Public Use
  Company Number: PHJP2018JP011666

PATIENT
  Age: 26 Year
  Sex: Female
  Weight: 56 kg

DRUGS (7)
  1. EXCEGRAN [Concomitant]
     Active Substance: ZONISAMIDE
     Indication: EPILEPSY
     Dosage: 100 MG, QD
     Route: 048
  2. AFINITOR [Suspect]
     Active Substance: EVEROLIMUS
     Dosage: 5 MG, UNK
     Route: 048
     Dates: start: 20170706, end: 20171005
  3. E KEPPRA [Concomitant]
     Active Substance: LEVETIRACETAM
     Indication: EPILEPSY
     Dosage: 750 MG, BID
     Route: 048
  4. SELENICA-R [Concomitant]
     Active Substance: VALPROATE SODIUM
     Indication: EPILEPSY
     Dosage: 340 MG, BID
     Route: 048
  5. AFINITOR [Suspect]
     Active Substance: EVEROLIMUS
     Indication: KIDNEY ANGIOMYOLIPOMA
     Dosage: 5 MG, QD
     Route: 048
     Dates: start: 20170302, end: 20170412
  6. RIVOTRIL [Concomitant]
     Active Substance: CLONAZEPAM
     Indication: EPILEPSY
     Dosage: 1.1 MG, QD
     Route: 048
  7. AFINITOR [Suspect]
     Active Substance: EVEROLIMUS
     Dosage: 10 MG, UNK
     Route: 048
     Dates: start: 20170413, end: 20170705

REACTIONS (10)
  - Renal haemorrhage [Recovered/Resolved]
  - Pallor [Unknown]
  - Shock haemorrhagic [Recovered/Resolved]
  - Haemoglobin decreased [Unknown]
  - Glucose tolerance impaired [Recovered/Resolved]
  - Malaise [Recovered/Resolved]
  - Pollakiuria [Recovered/Resolved]
  - Anaemia [Recovering/Resolving]
  - Blood pressure decreased [Unknown]
  - Sense of oppression [Unknown]

NARRATIVE: CASE EVENT DATE: 20171005
